FAERS Safety Report 7058618-6 (Version None)
Quarter: 2010Q4

REPORT INFORMATION
  Report Type: 
  Country: None (occurrence: None)
  Receive Date: 20101022
  Receipt Date: 20101013
  Transmission Date: 20110411
  Serious: Yes (Other)
  Sender: FDA-Public Use
  Company Number: B0675335A

PATIENT
  Sex: Male
  Weight: 104 kg

DRUGS (2)
  1. AVANDIA [Suspect]
     Route: 065
     Dates: start: 20100101, end: 20100401
  2. IRUMED [Concomitant]
     Indication: HYPERTENSION
     Dosage: 10MG PER DAY
     Route: 048

REACTIONS (1)
  - TACHYCARDIA [None]
